FAERS Safety Report 8935429 (Version 1)
Quarter: 2012Q4

REPORT INFORMATION
  Report Type: Spontaneous
  Country: US (occurrence: None)
  Receive Date: 20121119
  Receipt Date: 20121119
  Transmission Date: 20130627
  Serious: Yes (Hospitalization)
  Sender: FDA-Public Use
  Company Number: US-BANPHARM-20120325

PATIENT
  Age: 33 Year
  Sex: Male

DRUGS (1)
  1. NAPROXEN [Suspect]
     Indication: MIGRAINE HEADACHE

REACTIONS (8)
  - Rash pruritic [None]
  - Rash generalised [None]
  - Dizziness [None]
  - Kounis syndrome [None]
  - Hypersensitivity [None]
  - Blood pressure decreased [None]
  - Acute myocardial infarction [None]
  - Rash maculo-papular [None]
